FAERS Safety Report 19297961 (Version 1)
Quarter: 2021Q2

REPORT INFORMATION
  Report Type: Spontaneous
  Country: SE (occurrence: SE)
  Receive Date: 20210525
  Receipt Date: 20210525
  Transmission Date: 20210717
  Serious: Yes (Other)
  Sender: FDA-Public Use
  Company Number: SE-JNJFOC-20210135467

PATIENT
  Age: 32 Year
  Sex: Female
  Weight: 108 kg

DRUGS (4)
  1. STELARA [Suspect]
     Active Substance: USTEKINUMAB
     Indication: PUSTULAR PSORIASIS
     Dosage: LAST ADMINISTERED ON NOV?2020
     Route: 058
     Dates: start: 201911
  2. METFORMIN [Concomitant]
     Active Substance: METFORMIN HYDROCHLORIDE
  3. GLUCOPHAGE [Concomitant]
     Active Substance: METFORMIN HYDROCHLORIDE
  4. STELARA [Suspect]
     Active Substance: USTEKINUMAB

REACTIONS (4)
  - Off label use [Unknown]
  - Exposure during pregnancy [Recovered/Resolved]
  - Product use in unapproved indication [Unknown]
  - Abortion spontaneous [Unknown]

NARRATIVE: CASE EVENT DATE: 201911
